FAERS Safety Report 7591878-1 (Version None)
Quarter: 2011Q3

REPORT INFORMATION
  Report Type: 
  Country: None (occurrence: None)
  Receive Date: 20110706
  Receipt Date: 20110616
  Transmission Date: 20111222
  Serious: Yes (Other)
  Sender: FDA-Public Use
  Company Number: US-BAYER-2011-024450

PATIENT
  Age: 34 Year
  Sex: Female
  Weight: 72.562 kg

DRUGS (6)
  1. TRAMADOL HCL [Concomitant]
     Indication: BACK PAIN
  2. METFORMIN HCL [Concomitant]
     Dosage: 500 MG, UNK
     Route: 048
     Dates: start: 20050418
  3. OXYCODONE HCL [Concomitant]
     Indication: BACK PAIN
  4. YASMIN [Suspect]
     Indication: ORAL CONTRACEPTION
     Dosage: UNK
     Route: 048
     Dates: start: 20010101, end: 20050101
  5. SOMA [Concomitant]
     Indication: BACK PAIN
  6. LEXAPRO [Concomitant]
     Dosage: 10 MG, UNK
     Route: 048
     Dates: start: 20050702

REACTIONS (4)
  - PAIN [None]
  - GALLBLADDER DISORDER [None]
  - INJURY [None]
  - CHOLELITHIASIS [None]
